FAERS Safety Report 10063755 (Version 3)
Quarter: 2014Q2

REPORT INFORMATION
  Report Type: Report from Study
  Country: FR (occurrence: FR)
  Receive Date: 20140408
  Receipt Date: 20140421
  Transmission Date: 20141212
  Serious: Yes (Hospitalization)
  Sender: FDA-Public Use
  Company Number: FR-AMGEN-FRACT2014024555

PATIENT
  Age: 64 Year
  Sex: Male
  Weight: 59 kg

DRUGS (3)
  1. PANITUMUMAB [Suspect]
     Indication: COLORECTAL CANCER
     Dosage: 380 MG, CYCLICAL, EVERY TWO WEEKS
     Route: 042
     Dates: start: 20131121
  2. TRAMETINIB [Suspect]
     Indication: COLORECTAL CANCER
     Dosage: 1.5MG PER DAY
     Route: 048
     Dates: start: 20131121
  3. DABRAFENIB [Suspect]
     Indication: COLORECTAL CANCER
     Dosage: 150MG TWICE PER DAY
     Route: 048
     Dates: start: 20131121

REACTIONS (1)
  - Pyrexia [Recovered/Resolved]
